FAERS Safety Report 14056656 (Version 4)
Quarter: 2017Q4

REPORT INFORMATION
  Report Type: Report from Study
  Country: US (occurrence: US)
  Receive Date: 20171006
  Receipt Date: 20171228
  Transmission Date: 20180321
  Serious: Yes (Hospitalization, Other)
  Sender: FDA-Public Use
  Company Number: US-PFIZER INC-2017380609

PATIENT
  Age: 50 Year
  Sex: Female

DRUGS (1)
  1. IBRANCE [Suspect]
     Active Substance: PALBOCICLIB
     Indication: BREAST CANCER
     Dosage: 125 MG, CYCLIC (ONCE DAILY FOR 21 DAYS ON,THEN 7 DAYS OFF)
     Route: 048
     Dates: start: 20170825, end: 20171121

REACTIONS (11)
  - Staphylococcal skin infection [Unknown]
  - Streptococcal infection [Unknown]
  - Therapeutic response unexpected [Unknown]
  - Peripheral swelling [Unknown]
  - Drug dose omission [Unknown]
  - Lymphoedema [Unknown]
  - Pre-existing condition improved [Unknown]
  - Thrombosis [Unknown]
  - Hot flush [Not Recovered/Not Resolved]
  - Rash [Unknown]
  - Neoplasm progression [Unknown]

NARRATIVE: CASE EVENT DATE: 2017
